FAERS Safety Report 10884734 (Version 1)
Quarter: 2015Q1

REPORT INFORMATION
  Report Type: Spontaneous
  Country: US (occurrence: None)
  Receive Date: 20150227
  Receipt Date: 20150227
  Transmission Date: 20150721
  Serious: Yes (Other)
  Sender: FDA-Public Use
  Company Number: None

PATIENT
  Sex: Male
  Weight: 27.9 kg

DRUGS (2)
  1. CYCLOSPORIN [Suspect]
     Active Substance: CYCLOSPORINE
     Indication: GROWTH HORMONE DEFICIENCY
     Route: 058
     Dates: start: 20140216, end: 20140928
  2. VALGANCYCLOVIR [Suspect]
     Active Substance: VALGANCICLOVIR

REACTIONS (1)
  - Post transplant lymphoproliferative disorder [None]
